FAERS Safety Report 8141566-8 (Version None)
Quarter: 2012Q1

REPORT INFORMATION
  Report Type: 
  Country: None (occurrence: None)
  Receive Date: 20120216
  Receipt Date: 20120207
  Transmission Date: 20120608
  Serious: Yes (Other)
  Sender: FDA-Public Use
  Company Number: US-JNJFOC-20120207256

PATIENT
  Age: 6 Year
  Sex: Male

DRUGS (2)
  1. ZYRTEC [Suspect]
     Route: 065
  2. ZYRTEC [Suspect]
     Indication: PRODUCT USED FOR UNKNOWN INDICATION
     Dosage: FOR THE PAST 4 YEARS
     Route: 065

REACTIONS (1)
  - WITHDRAWAL SYNDROME [None]
